FAERS Safety Report 6257539-6 (Version None)
Quarter: 2009Q3

REPORT INFORMATION
  Report Type: 
  Country: None (occurrence: None)
  Receive Date: 20090706
  Receipt Date: 20090623
  Transmission Date: 20100115
  Serious: Yes (Hospitalization)
  Sender: FDA-Public Use
  Company Number: PHHY2009MX16582

PATIENT
  Sex: Female

DRUGS (3)
  1. ACLASTA [Suspect]
     Indication: OSTEOPOROSIS
     Dosage: 5 MG/100 ML
     Dates: start: 20080226
  2. PARACETAMOL [Concomitant]
  3. LYRICA [Concomitant]

REACTIONS (5)
  - BACK PAIN [None]
  - BONE PAIN [None]
  - NERVE BLOCK [None]
  - PAIN IN EXTREMITY [None]
  - SPINAL OPERATION [None]
